FAERS Safety Report 4899909-4 (Version None)
Quarter: 2006Q1

REPORT INFORMATION
  Report Type: 
  Country: None (occurrence: None)
  Receive Date: 20060118
  Receipt Date: 20050531
  Transmission Date: 20060701
  Serious: No
  Sender: FDA-Public Use
  Company Number: 2005001001

PATIENT
  Sex: Male

DRUGS (2)
  1. TARCEVA [Suspect]
     Indication: SQUAMOUS CELL CARCINOMA
     Dosage: ORAL
     Route: 048
  2. GLUCOVANCE [Concomitant]

REACTIONS (2)
  - BLOOD GLUCOSE DECREASED [None]
  - RASH [None]
